FAERS Safety Report 24451054 (Version 1)
Quarter: 2024Q4

REPORT INFORMATION
  Report Type: Spontaneous
  Country: US (occurrence: None)
  Receive Date: 20241017
  Receipt Date: 20241017
  Transmission Date: 20250114
  Serious: No
  Sender: Public
  Company Number: None

PATIENT
  Age: 64 Year
  Sex: Female
  Weight: 108 kg

DRUGS (8)
  1. TIRZEPATIDE [Suspect]
     Active Substance: TIRZEPATIDE
     Indication: Weight decreased
     Dosage: OTHER QUANTITY : .50 INJECTION(S);?OTHER FREQUENCY : 1X/WEEK;?
     Route: 058
     Dates: start: 20240301, end: 20240921
  2. BACTERIOSTATIC WATER [Suspect]
     Active Substance: WATER
  3. ALBUTEROL [Concomitant]
     Active Substance: ALBUTEROL
  4. TYLENOL [Concomitant]
  5. IBUPROFEN [Concomitant]
  6. Senior multi vitamin [Concomitant]
  7. Vitamin K-D [Concomitant]
  8. ZINC [Concomitant]
     Active Substance: ZINC

REACTIONS (2)
  - Cytomegalovirus infection [None]
  - Pneumonia [None]

NARRATIVE: CASE EVENT DATE: 20240921
